FAERS Safety Report 13651335 (Version 1)
Quarter: 2017Q2

REPORT INFORMATION
  Report Type: Spontaneous
  Country: PL (occurrence: PL)
  Receive Date: 20170614
  Receipt Date: 20170614
  Transmission Date: 20170830
  Serious: Yes (Death, Life-Threatening, Hospitalization, Disabling, Other)
  Sender: FDA-Public Use
  Company Number: PL-ALVOGEN-2017-ALVOGEN-092326

PATIENT
  Age: 14 Year
  Sex: Female

DRUGS (21)
  1. TEMOZOLOMIDE. [Suspect]
     Active Substance: TEMOZOLOMIDE
     Indication: EXTRA-OSSEOUS EWING^S SARCOMA
  2. IFOSFAMIDE. [Suspect]
     Active Substance: IFOSFAMIDE
     Indication: EXTRA-OSSEOUS EWING^S SARCOMA
  3. CARBOPLATIN. [Suspect]
     Active Substance: CARBOPLATIN
     Indication: EXTRA-OSSEOUS EWING^S SARCOMA
  4. IFOSFAMIDE. [Suspect]
     Active Substance: IFOSFAMIDE
     Indication: EXTRA-OSSEOUS EWING^S SARCOMA
  5. EPIRUBICIN [Suspect]
     Active Substance: EPIRUBICIN
     Indication: EXTRA-OSSEOUS EWING^S SARCOMA
  6. POSACONAZOLE [Suspect]
     Active Substance: POSACONAZOLE
     Indication: FUNGAL INFECTION
  7. CASPOFUNGIN [Suspect]
     Active Substance: CASPOFUNGIN
     Indication: FUNGAL INFECTION
  8. VINCRISTINE [Suspect]
     Active Substance: VINCRISTINE
     Indication: EXTRA-OSSEOUS EWING^S SARCOMA
  9. IFOSFAMIDE. [Suspect]
     Active Substance: IFOSFAMIDE
     Indication: EXTRA-OSSEOUS EWING^S SARCOMA
  10. AMPHOTERICIN B. [Suspect]
     Active Substance: AMPHOTERICIN B
     Indication: FUNGAL INFECTION
     Dosage: LIPID COMPLEX
  11. ETOPOSIDE. [Suspect]
     Active Substance: ETOPOSIDE
     Indication: EXTRA-OSSEOUS EWING^S SARCOMA
  12. VINCRISTINE [Suspect]
     Active Substance: VINCRISTINE
     Indication: EXTRA-OSSEOUS EWING^S SARCOMA
  13. VINCRISTINE [Suspect]
     Active Substance: VINCRISTINE
     Indication: EXTRA-OSSEOUS EWING^S SARCOMA
  14. AMPHOTERICIN B. [Suspect]
     Active Substance: AMPHOTERICIN B
     Indication: FUNGAL INFECTION
  15. ACTINOMYCIN D [Suspect]
     Active Substance: DACTINOMYCIN
     Indication: EXTRA-OSSEOUS EWING^S SARCOMA
  16. AMPHOTERICIN B. [Suspect]
     Active Substance: AMPHOTERICIN B
     Indication: FUNGAL INFECTION
     Dosage: 6 MG OF AMPHOTERICIN?B IN 25 ML OF SALINE
     Route: 042
  17. DOXORUBICIN [Suspect]
     Active Substance: DOXORUBICIN
     Indication: EXTRA-OSSEOUS EWING^S SARCOMA
  18. IRINOTECAN [Suspect]
     Active Substance: IRINOTECAN
     Indication: EXTRA-OSSEOUS EWING^S SARCOMA
  19. ETOPOSIDE. [Suspect]
     Active Substance: ETOPOSIDE
     Indication: EXTRA-OSSEOUS EWING^S SARCOMA
  20. ACTINOMYCIN D [Suspect]
     Active Substance: DACTINOMYCIN
     Indication: EXTRA-OSSEOUS EWING^S SARCOMA
  21. MESNA. [Suspect]
     Active Substance: MESNA
     Indication: EXTRA-OSSEOUS EWING^S SARCOMA

REACTIONS (12)
  - Neutropenia [Not Recovered/Not Resolved]
  - Ileus [Fatal]
  - Multiple organ dysfunction syndrome [Fatal]
  - Gastrointestinal motility disorder [Unknown]
  - Bone marrow failure [Unknown]
  - Agranulocytosis [Unknown]
  - Intestinal perforation [Fatal]
  - Gastrointestinal toxicity [Unknown]
  - Systemic candida [Fatal]
  - Vomiting [Unknown]
  - Drug ineffective [Unknown]
  - Febrile neutropenia [Unknown]
